FAERS Safety Report 12760450 (Version 1)
Quarter: 2016Q3

REPORT INFORMATION
  Report Type: Spontaneous
  Country: GB (occurrence: GB)
  Receive Date: 20160919
  Receipt Date: 20160919
  Transmission Date: 20161109
  Serious: Yes (Death, Other)
  Sender: FDA-Public Use
  Company Number: GB-TEVA-692635ACC

PATIENT
  Age: 72 Year
  Sex: Female
  Weight: 60 kg

DRUGS (10)
  1. ASPIRIN. [Concomitant]
     Active Substance: ASPIRIN
  2. CALCICHEW [Concomitant]
     Active Substance: CALCIUM CARBONATE
  3. SUMATRIPTAN. [Suspect]
     Active Substance: SUMATRIPTAN
     Indication: MIGRAINE WITHOUT AURA
     Dosage: STAT DOSE
     Route: 048
     Dates: start: 20160711, end: 20160711
  4. OMEPRAZOLE. [Concomitant]
     Active Substance: OMEPRAZOLE
  5. ALFACALCIDOL [Concomitant]
     Active Substance: ALFACALCIDOL
  6. ARANESP [Concomitant]
     Active Substance: DARBEPOETIN ALFA
  7. NITRAZEPAM [Concomitant]
     Active Substance: NITRAZEPAM
  8. VENOFER [Concomitant]
     Active Substance: IRON SUCROSE
  9. BISOPROLOL [Concomitant]
     Active Substance: BISOPROLOL
  10. BUSCOPAN [Concomitant]
     Active Substance: BUTYLSCOPOLAMINE BROMIDE

REACTIONS (3)
  - Wheezing [Recovered/Resolved]
  - Dyspnoea [Recovered/Resolved]
  - Cardiac arrest [Fatal]

NARRATIVE: CASE EVENT DATE: 20160711
